FAERS Safety Report 7478040-8 (Version None)
Quarter: 2011Q2

REPORT INFORMATION
  Report Type: 
  Country: None (occurrence: None)
  Receive Date: 20110513
  Receipt Date: 20110502
  Transmission Date: 20111010
  Serious: Yes (Hospitalization)
  Sender: FDA-Public Use
  Company Number: AT-SANOFI-AVENTIS-2011SA027047

PATIENT
  Age: 60 Year
  Sex: Male

DRUGS (2)
  1. MULTAQ [Suspect]
     Indication: ATRIAL FIBRILLATION
     Route: 048
     Dates: start: 20100201, end: 20101101
  2. SEDACORON [Concomitant]
     Indication: ATRIAL FIBRILLATION
     Dosage: PRIOR TO DRONEDARONE THERAPY.
     Route: 065

REACTIONS (3)
  - HYPERTHYROIDISM [None]
  - TACHYCARDIA [None]
  - WEIGHT DECREASED [None]
